FAERS Safety Report 20611596 (Version 1)
Quarter: 2022Q1

REPORT INFORMATION
  Report Type: Report from Study
  Country: US (occurrence: None)
  Receive Date: 20220318
  Receipt Date: 20220318
  Transmission Date: 20220423
  Serious: Yes (Death)
  Sender: FDA-Public Use
  Company Number: 2022A113270

PATIENT
  Age: 31513 Day
  Sex: Male

DRUGS (2)
  1. LYNPARZA [Suspect]
     Active Substance: OLAPARIB
     Indication: Metastases to liver
     Route: 048
     Dates: start: 202201
  2. LYNPARZA [Suspect]
     Active Substance: OLAPARIB
     Indication: Cholangiocarcinoma
     Route: 048
     Dates: start: 202201

REACTIONS (1)
  - Death [Fatal]

NARRATIVE: CASE EVENT DATE: 20220301
